FAERS Safety Report 22645098 (Version 1)
Quarter: 2023Q2

REPORT INFORMATION
  Report Type: Spontaneous
  Country: BR (occurrence: BR)
  Receive Date: 20230627
  Receipt Date: 20230627
  Transmission Date: 20230721
  Serious: Yes (Other)
  Sender: FDA-Public Use
  Company Number: BR-ROCHE-3377201

PATIENT
  Age: 60 Year
  Sex: Male

DRUGS (2)
  1. RIVOTRIL [Suspect]
     Active Substance: CLONAZEPAM
     Indication: Seizure
     Dosage: EVERY NIGHT, HE HAD STARTED A RIVOTRIL WITH BIOPAS PACKAGING APPROXIMATELY 20 DAYS AGO (MAY/23)
     Route: 065
     Dates: start: 2019
  2. RIVOTRIL [Suspect]
     Active Substance: CLONAZEPAM
     Indication: Anxiety

REACTIONS (2)
  - Therapeutic product effect decreased [Not Recovered/Not Resolved]
  - Discomfort [Not Recovered/Not Resolved]

NARRATIVE: CASE EVENT DATE: 20230501
